FAERS Safety Report 5220074-8 (Version None)
Quarter: 2007Q1

REPORT INFORMATION
  Report Type: 
  Country: None (occurrence: None)
  Receive Date: 20070124
  Receipt Date: 20070124
  Transmission Date: 20070707
  Serious: Yes (Other)
  Sender: FDA-Public Use
  Company Number: None

PATIENT
  Age: 58 Year
  Sex: Male
  Weight: 83.9154 kg

DRUGS (8)
  1. CLINDAMYCIN [Suspect]
     Indication: FOLLICULITIS
     Dosage: PO, 300 MG Q 6HR
     Route: 048
     Dates: start: 20061011, end: 20061016
  2. METFORMIN HCL [Concomitant]
  3. SIMVASTAIN [Concomitant]
  4. CITALOPRAM HYDROBROMIDE [Concomitant]
  5. VIAGRA [Concomitant]
  6. ASPIRIN [Concomitant]
  7. EYE DROPS-BRIMONIDINE [Concomitant]
  8. TIMOLOL MALEATE [Concomitant]

REACTIONS (1)
  - RASH MORBILLIFORM [None]
